FAERS Safety Report 13442596 (Version 3)
Quarter: 2017Q2

REPORT INFORMATION
  Report Type: Spontaneous
  Country: US (occurrence: US)
  Receive Date: 20170414
  Receipt Date: 20170503
  Transmission Date: 20170830
  Serious: No
  Sender: FDA-Public Use
  Company Number: US-PFIZER INC-2017160790

PATIENT
  Age: 48 Year
  Sex: Male
  Weight: 102.4 kg

DRUGS (1)
  1. VIAGRA [Suspect]
     Active Substance: SILDENAFIL CITRATE
     Indication: ERECTILE DYSFUNCTION
     Dosage: 25 MG, 1X/DAY
     Dates: start: 20170110

REACTIONS (2)
  - Ejaculation disorder [Unknown]
  - Erection increased [Unknown]
